FAERS Safety Report 6399085-5 (Version None)
Quarter: 2009Q4

REPORT INFORMATION
  Report Type: 
  Country: None (occurrence: None)
  Receive Date: 20091008
  Receipt Date: 20090930
  Transmission Date: 20100525
  Serious: Yes (Other)
  Sender: FDA-Public Use
  Company Number: TRP_06465_2009

PATIENT
  Sex: Female
  Weight: 721.2193 kg

DRUGS (2)
  1. RIBASPHERE [Suspect]
     Indication: HEPATITIS C
     Dosage: 1000 MG, DAILY [600 MG QAM AND 400 MG QPM] ORAL
     Route: 048
     Dates: start: 20090805, end: 20090901
  2. PEGASYS [Suspect]
     Indication: HEPATITIS C
     Dosage: 180 UG 1X/WEEK SUBCUTANEOUS
     Route: 058
     Dates: start: 20090805, end: 20090901

REACTIONS (16)
  - ABDOMINAL PAIN UPPER [None]
  - EPISTAXIS [None]
  - FAECES DISCOLOURED [None]
  - GINGIVAL BLEEDING [None]
  - HAEMANGIOMA [None]
  - HAEMATOCRIT DECREASED [None]
  - HAEMOGLOBIN DECREASED [None]
  - HEADACHE [None]
  - NAUSEA [None]
  - NIGHT SWEATS [None]
  - PALPITATIONS [None]
  - PLATELET COUNT DECREASED [None]
  - RED BLOOD CELL COUNT DECREASED [None]
  - SPLENOMEGALY [None]
  - URINE COLOUR ABNORMAL [None]
  - WHITE BLOOD CELL COUNT DECREASED [None]
